FAERS Safety Report 25812072 (Version 1)
Quarter: 2025Q3

REPORT INFORMATION
  Report Type: Spontaneous
  Country: US (occurrence: US)
  Receive Date: 20250917
  Receipt Date: 20250917
  Transmission Date: 20251021
  Serious: Yes (Death, Other)
  Sender: AMGEN
  Company Number: US-AMGEN-USASP2025181610

PATIENT
  Sex: Female

DRUGS (4)
  1. BEVACIZUMAB [Suspect]
     Active Substance: BEVACIZUMAB
     Indication: Clear cell carcinoma of cervix
     Route: 065
  2. CARBOPLATIN [Concomitant]
     Active Substance: CARBOPLATIN
     Indication: Clear cell carcinoma of cervix
     Route: 065
  3. PACLITAXEL [Concomitant]
     Active Substance: PACLITAXEL
     Indication: Clear cell carcinoma of cervix
     Route: 065
  4. TISOTUMAB VEDOTIN [Concomitant]
     Active Substance: TISOTUMAB VEDOTIN
     Indication: Clear cell carcinoma of cervix
     Route: 065

REACTIONS (4)
  - Death [Fatal]
  - Papilloma viral infection [Unknown]
  - Clear cell carcinoma of cervix [Unknown]
  - Sepsis [Unknown]
